FAERS Safety Report 19824207 (Version 1)
Quarter: 2021Q3

REPORT INFORMATION
  Report Type: Spontaneous
  Country: MX (occurrence: MX)
  Receive Date: 20210913
  Receipt Date: 20210913
  Transmission Date: 20211014
  Serious: Yes (Hospitalization)
  Sender: FDA-Public Use
  Company Number: MX-BAYER-2021-209820

PATIENT
  Age: 12 Year
  Sex: Male

DRUGS (1)
  1. LAROTRECTINIB [Suspect]
     Active Substance: LAROTRECTINIB
     Indication: ASTROCYTOMA
     Dosage: 5 ML, BID
     Route: 048
     Dates: start: 20210709, end: 20210725

REACTIONS (1)
  - Astrocytoma [None]

NARRATIVE: CASE EVENT DATE: 202108
